FAERS Safety Report 9395786 (Version 1)
Quarter: 2013Q3

REPORT INFORMATION
  Report Type: Spontaneous
  Country: US (occurrence: US)
  Receive Date: 20130711
  Receipt Date: 20130711
  Transmission Date: 20140515
  Serious: No
  Sender: FDA-Public Use
  Company Number: US-COVIDIEN/TYCO HEALTHCARE/MALLINCKRODT-T201301591

PATIENT
  Age: 38 Year
  Sex: Male

DRUGS (1)
  1. OXYCODONE/ACETAMINOPHEN [Suspect]
     Indication: PAIN
     Dosage: 10/325 MG Q 12 HOURS
     Route: 048
     Dates: start: 20121023

REACTIONS (2)
  - Drug withdrawal syndrome [Unknown]
  - Drug screen negative [Unknown]
